FAERS Safety Report 5643051-1 (Version None)
Quarter: 2008Q1

REPORT INFORMATION
  Report Type: 
  Country: None (occurrence: None)
  Receive Date: 20080228
  Receipt Date: 20080220
  Transmission Date: 20080703
  Serious: No
  Sender: FDA-Public Use
  Company Number: PHHO2007GB16209

PATIENT
  Age: 44 Year
  Sex: Female
  Weight: 80 kg

DRUGS (7)
  1. LMF237 VS VILDAGLIPTIN VS METFORMIN [Suspect]
     Indication: TYPE 2 DIABETES MELLITUS
     Dates: end: 20071001
  2. ASPIRIN [Concomitant]
  3. LISINOPRIL [Concomitant]
  4. SIMVASTATIN [Concomitant]
  5. BENDROFLUMETHIAZIDE [Concomitant]
  6. FLUOXETINE [Concomitant]
  7. LANSOPRAZOLE [Concomitant]

REACTIONS (5)
  - BLOOD GLUCOSE INCREASED [None]
  - DRUG INEFFECTIVE [None]
  - FATIGUE [None]
  - HYPERHIDROSIS [None]
  - THIRST [None]
